FAERS Safety Report 10183034 (Version 1)
Quarter: 2014Q2

REPORT INFORMATION
  Report Type: Spontaneous
  Country: US (occurrence: US)
  Receive Date: 20140520
  Receipt Date: 20140520
  Transmission Date: 20141212
  Serious: Yes (Death, Hospitalization)
  Sender: FDA-Public Use
  Company Number: US-SA-2014SA042661

PATIENT
  Age: 76 Year
  Sex: Male

DRUGS (10)
  1. MULTAQ [Suspect]
     Indication: ATRIAL FIBRILLATION
     Dosage: STARTED TREATMENT AT THE AGE OF 74
     Route: 048
  2. PRILOSEC [Concomitant]
  3. PRAVACHOL [Concomitant]
  4. METOPROLOL [Concomitant]
  5. MONOPRIL [Concomitant]
  6. HYDROCHLOROTHIAZIDE [Concomitant]
     Dosage: 20-12.5 MG BID
  7. GLUCOVANCE [Concomitant]
  8. COUMADIN [Concomitant]
  9. ATIVAN [Concomitant]
  10. LISINOPRIL [Concomitant]

REACTIONS (13)
  - Septic shock [Fatal]
  - Pancreatitis necrotising [Unknown]
  - Abdominal pain [Unknown]
  - Pancreatic abscess [Unknown]
  - Multi-organ failure [Unknown]
  - Duodenal perforation [Unknown]
  - Diarrhoea [Unknown]
  - Nausea [Unknown]
  - Vomiting [Unknown]
  - Intestinal perforation [Unknown]
  - Acute respiratory distress syndrome [Unknown]
  - Wheezing [Unknown]
  - Rales [Unknown]
